FAERS Safety Report 9884518 (Version 1)
Quarter: 2014Q1

REPORT INFORMATION
  Report Type: Spontaneous
  Country: US (occurrence: None)
  Receive Date: 20140207
  Receipt Date: 20140207
  Transmission Date: 20141002
  Serious: Yes (Other)
  Sender: FDA-Public Use
  Company Number: None

PATIENT
  Age: 23 Year
  Sex: Female
  Weight: 81.65 kg

DRUGS (1)
  1. THINOGENICS [Suspect]
     Indication: WEIGHT CONTROL
     Dosage: NKA ONCE DAILY
     Dates: start: 20130201, end: 20130301

REACTIONS (3)
  - Convulsion [None]
  - Tachycardia [None]
  - Eye disorder [None]
